FAERS Safety Report 8869343 (Version 1)
Quarter: 2012Q4

REPORT INFORMATION
  Report Type: Spontaneous
  Country: IN (occurrence: None)
  Receive Date: 20121024
  Receipt Date: 20121024
  Transmission Date: 20130627
  Serious: Yes (Other)
  Sender: FDA-Public Use
  Company Number: COL_12528_2012

PATIENT
  Age: 72 Year
  Sex: Male
  Weight: 74 kg

DRUGS (3)
  1. COLGATE MAX FRESH COOL MINT [Suspect]
     Indication: DENTAL CARIES
     Dosage: (Normal quantity/ Once/ Oral)
     Dates: start: 20120712
  2. ABPHYLLINE [Concomitant]
  3. DERIPHYLLINE RETARD [Concomitant]

REACTIONS (2)
  - Dyspnoea [None]
  - Suffocation feeling [None]
